FAERS Safety Report 15807161 (Version 1)
Quarter: 2019Q1

REPORT INFORMATION
  Report Type: Spontaneous
  Country: US (occurrence: US)
  Receive Date: 20190110
  Receipt Date: 20190110
  Transmission Date: 20190417
  Serious: No
  Sender: FDA-Public Use
  Company Number: US-BAYER-2019-007042

PATIENT
  Age: 69 Year
  Sex: Male

DRUGS (1)
  1. STIVARGA [Suspect]
     Active Substance: REGORAFENIB
     Dosage: 120 MG DAILY FOR 21 DAYS/28 DAY CYCLE
     Dates: start: 20180917

REACTIONS (2)
  - Fatigue [Not Recovered/Not Resolved]
  - Off label use [None]
